FAERS Safety Report 4939869-0 (Version None)
Quarter: 2006Q1

REPORT INFORMATION
  Report Type: 
  Country: None (occurrence: None)
  Receive Date: 20060307
  Receipt Date: 20060222
  Transmission Date: 20060701
  Serious: Yes (Hospitalization, Other)
  Sender: FDA-Public Use
  Company Number: 2006027371

PATIENT
  Sex: Female

DRUGS (2)
  1. PREPIDIL [Suspect]
     Indication: LABOUR INDUCTION
     Dosage: TWICE, VAGINAL
     Route: 067
  2. OXYTOCIN [Suspect]
     Indication: LABOUR INDUCTION
     Dosage: INTRAVENOUS
     Route: 042

REACTIONS (3)
  - DISSEMINATED INTRAVASCULAR COAGULATION [None]
  - DRUG EXPOSURE DURING PREGNANCY [None]
  - INTRA-UTERINE DEATH [None]
